FAERS Safety Report 16853855 (Version 1)
Quarter: 2019Q3

REPORT INFORMATION
  Report Type: Spontaneous
  Country: CA (occurrence: CA)
  Receive Date: 20190926
  Receipt Date: 20190926
  Transmission Date: 20191005
  Serious: Yes (Other)
  Sender: FDA-Public Use
  Company Number: CA-ROCHE-2419188

PATIENT
  Age: 45 Year
  Sex: Female

DRUGS (3)
  1. XOLAIR [Suspect]
     Active Substance: OMALIZUMAB
     Indication: CHRONIC SPONTANEOUS URTICARIA
     Dosage: 300 MG, EVERY 4 WEEKS
     Route: 058
     Dates: start: 20190814
  2. RUPALL [Concomitant]
     Active Substance: RUPATADINE FUMARATE
     Indication: PRODUCT USED FOR UNKNOWN INDICATION
     Dosage: 1 DF, QD
     Route: 048
     Dates: start: 20190528
  3. CYANOCOBALAMIN. [Concomitant]
     Active Substance: CYANOCOBALAMIN
     Indication: PRODUCT USED FOR UNKNOWN INDICATION
     Dosage: 1 DF, QD
     Route: 048
     Dates: start: 201707

REACTIONS (7)
  - Heart rate increased [Recovering/Resolving]
  - Paraesthesia oral [Recovering/Resolving]
  - Dysphagia [Recovering/Resolving]
  - Angioedema [Unknown]
  - Body temperature decreased [Recovering/Resolving]
  - Blood pressure increased [Recovering/Resolving]
  - Food allergy [Unknown]

NARRATIVE: CASE EVENT DATE: 20190814
